FAERS Safety Report 7044261-1 (Version None)
Quarter: 2010Q4

REPORT INFORMATION
  Report Type: 
  Country: None (occurrence: None)
  Receive Date: 20101014
  Receipt Date: 20101004
  Transmission Date: 20110411
  Serious: No
  Sender: FDA-Public Use
  Company Number: US-BIOGENIDEC-2010BI032099

PATIENT
  Age: 53 Year
  Sex: Female

DRUGS (1)
  1. TYSABRI [Suspect]
     Indication: MULTIPLE SCLEROSIS
     Route: 042
     Dates: start: 20100614

REACTIONS (14)
  - BALANCE DISORDER [None]
  - BLOOD PRESSURE INCREASED [None]
  - BODY TEMPERATURE INCREASED [None]
  - DIPLOPIA [None]
  - EAR INFECTION [None]
  - EAR PAIN [None]
  - FEELING COLD [None]
  - HYPERSENSITIVITY [None]
  - NAUSEA [None]
  - STRABISMUS [None]
  - TINNITUS [None]
  - TREMOR [None]
  - VERTIGO [None]
  - VOMITING [None]
